FAERS Safety Report 25954924 (Version 2)
Quarter: 2025Q4

REPORT INFORMATION
  Report Type: Spontaneous
  Country: EU (occurrence: EU)
  Receive Date: 20251024
  Receipt Date: 20251102
  Transmission Date: 20260118
  Serious: Yes (Hospitalization, Other)
  Sender: ALEXION PHARMACEUTICALS
  Company Number: EU-AMGEN-FRASP2025202581

PATIENT
  Sex: Male

DRUGS (4)
  1. SOLIRIS [Suspect]
     Active Substance: ECULIZUMAB
     Indication: C3 glomerulopathy
     Dosage: UNK
     Route: 065
  2. MYCOPHENOLATE MOFETIL [Concomitant]
     Active Substance: MYCOPHENOLATE MOFETIL
     Dosage: UNK
     Route: 065
  3. CORTICOSTEROID NOS [Concomitant]
     Active Substance: CORTICOSTEROID NOS
     Indication: C3 glomerulopathy
     Dosage: UNK
     Route: 065
  4. Immunoglobulin [Concomitant]
     Indication: C3 glomerulopathy
     Dosage: UNK

REACTIONS (7)
  - Pneumonia [Unknown]
  - Diarrhoea [Unknown]
  - C3 glomerulopathy [Recovering/Resolving]
  - Kidney transplant rejection [Unknown]
  - Polyomavirus-associated nephropathy [Unknown]
  - Treatment failure [Unknown]
  - Off label use [Unknown]
